FAERS Safety Report 25675237 (Version 1)
Quarter: 2025Q3

REPORT INFORMATION
  Report Type: Report from Study
  Country: US (occurrence: US)
  Receive Date: 20250813
  Receipt Date: 20250813
  Transmission Date: 20251021
  Serious: No
  Sender: SUNOVION
  Company Number: US-SUMITOMO PHARMA SWITZERLAND GMBH-2025SPA008271

PATIENT
  Age: 67 Year
  Sex: Male

DRUGS (13)
  1. ORGOVYX [Suspect]
     Active Substance: RELUGOLIX
     Indication: Prostate cancer
     Route: 048
  2. AMLODIPINE [Concomitant]
     Active Substance: AMLODIPINE BESYLATE
  3. ASPIRIN [Concomitant]
     Active Substance: ASPIRIN
  4. ATORVASTATIN [Concomitant]
     Active Substance: ATORVASTATIN
  5. CHLORTHALIDONE [Concomitant]
     Active Substance: CHLORTHALIDONE
  6. CIPROFLOXACIN [Concomitant]
     Active Substance: CIPROFLOXACIN
  7. ENVARSUS XR [Concomitant]
     Active Substance: TACROLIMUS
  8. FELODIPINE [Concomitant]
     Active Substance: FELODIPINE
  9. LOSARTAN [Concomitant]
     Active Substance: LOSARTAN
  10. VITAMINS [Concomitant]
     Active Substance: VITAMINS
  11. MYCOPHENOLIC ACID [Concomitant]
     Active Substance: MYCOPHENOLIC ACID
  12. VALIUM [Concomitant]
     Active Substance: DIAZEPAM
  13. WEGOVY [Concomitant]
     Active Substance: SEMAGLUTIDE

REACTIONS (3)
  - Weight increased [Unknown]
  - Nausea [Unknown]
  - Incorrect dose administered [Unknown]
